FAERS Safety Report 9328757 (Version 1)
Quarter: 2013Q2

REPORT INFORMATION
  Report Type: Spontaneous
  Country: US (occurrence: US)
  Receive Date: 20130604
  Receipt Date: 20130604
  Transmission Date: 20140414
  Serious: No
  Sender: FDA-Public Use
  Company Number: US-SANOFI-AVENTIS-2013SA012178

PATIENT
  Age: 52 Year
  Sex: Male

DRUGS (3)
  1. LANTUS SOLOSTAR [Suspect]
     Indication: TYPE 2 DIABETES MELLITUS
     Dosage: 45-55 UNITS DAILY
     Route: 048
     Dates: start: 201301
  2. SOLOSTAR [Suspect]
     Dates: start: 201301
  3. HUMALOG [Concomitant]
     Dosage: 18-25 UNITS THREE TIMES A DAY

REACTIONS (2)
  - Blood glucose increased [Unknown]
  - Visual impairment [Unknown]
